FAERS Safety Report 18094488 (Version 2)
Quarter: 2021Q2

REPORT INFORMATION
  Report Type: Other
  Country: GB (occurrence: GB)
  Receive Date: 20200731
  Receipt Date: 20210419
  Transmission Date: 20210717
  Serious: Yes (Other)
  Sender: FDA-Public Use
  Company Number: GB-CELLTRION INC.-2020GB024772

PATIENT

DRUGS (6)
  1. TRASTUZUMAB (UNKNOWN) [Suspect]
     Active Substance: TRASTUZUMAB
     Indication: BREAST CANCER METASTATIC
     Dosage: 315 MG, EVERY 3 WEEKS
     Route: 042
     Dates: start: 20171121, end: 20180711
  2. CAPECITABINE. [Suspect]
     Active Substance: CAPECITABINE
     Indication: BREAST CANCER METASTATIC
     Dosage: 1450 MG
     Route: 048
     Dates: start: 20190411
  3. DOCETAXEL. [Suspect]
     Active Substance: DOCETAXEL
     Indication: BREAST CANCER METASTATIC
     Dosage: 90 MG, EVERY 3 WEEKS (6 CYCLES PER REGIMEN)
     Route: 042
     Dates: start: 20171121, end: 20180302
  4. TRASTUZUMAB (UNKNOWN) [Suspect]
     Active Substance: TRASTUZUMAB
     Dosage: 357 MG, EVERY 3 WEEKS
     Route: 042
     Dates: start: 20190411
  5. TRASTUZUMAB EMTANSINE [Suspect]
     Active Substance: ADO-TRASTUZUMAB EMTANSINE
     Indication: BREAST CANCER METASTATIC
     Dosage: 160 MG, EVERY 3 WEEKS
     Route: 042
     Dates: start: 20180828, end: 201902
  6. PERTUZUMAB. [Suspect]
     Active Substance: PERTUZUMAB
     Indication: BREAST CANCER METASTATIC
     Dosage: 420 MG, EVERY 3 WEEKS
     Route: 042
     Dates: start: 20171121, end: 20180711

REACTIONS (1)
  - Pneumonia aspiration [Recovered/Resolved]

NARRATIVE: CASE EVENT DATE: 202001
